FAERS Safety Report 7513763-3 (Version None)
Quarter: 2011Q2

REPORT INFORMATION
  Report Type: 
  Country: None (occurrence: None)
  Receive Date: 20110531
  Receipt Date: 20110505
  Transmission Date: 20111010
  Serious: Yes (Hospitalization, Other)
  Sender: FDA-Public Use
  Company Number: US-BAYER-2011-002433

PATIENT
  Age: 43 Year
  Sex: Female
  Weight: 61 kg

DRUGS (8)
  1. TOPAMAX [Concomitant]
     Indication: MIGRAINE
     Dosage: 25 MG, OM
     Route: 048
  2. SIMVASTATIN [Concomitant]
     Dosage: UNK
     Dates: start: 20091101
  3. YAZ [Suspect]
     Indication: ACNE
  4. VITAMIIN C [Concomitant]
  5. TOPAMAX [Concomitant]
     Dosage: 50 MG, OM
     Route: 048
  6. SYNTHROID [Concomitant]
  7. YAZ [Suspect]
     Indication: CONTRACEPTION
     Dosage: UNK
     Route: 048
     Dates: start: 20070301, end: 20091001
  8. TOPAMAX [Concomitant]
     Dosage: 100 MG, HS
     Route: 048

REACTIONS (8)
  - CEREBRAL ARTERY THROMBOSIS [None]
  - ISCHAEMIC CEREBRAL INFARCTION [None]
  - DYSARTHRIA [None]
  - VIITH NERVE PARALYSIS [None]
  - CEREBROVASCULAR ACCIDENT [None]
  - MUSCULAR WEAKNESS [None]
  - FATIGUE [None]
  - VISUAL IMPAIRMENT [None]
